FAERS Safety Report 18616863 (Version 1)
Quarter: 2020Q4

REPORT INFORMATION
  Report Type: Spontaneous
  Country: KR (occurrence: KR)
  Receive Date: 20201215
  Receipt Date: 20201215
  Transmission Date: 20210114
  Serious: Yes (Hospitalization, Other)
  Sender: FDA-Public Use
  Company Number: KR-CPL-002056

PATIENT
  Age: 71 Year
  Sex: Male
  Weight: 55 kg

DRUGS (4)
  1. ROCURONIUM/ROCURONIUM BROMIDE [Interacting]
     Active Substance: ROCURONIUM BROMIDE
     Indication: ANAESTHESIA
     Dosage: BOLUS INJECTION 50 MG (0.9 MG/KG)
  2. REMIFENTANIL/REMIFENTANIL HYDROCHLORIDE [Concomitant]
     Active Substance: REMIFENTANIL HYDROCHLORIDE
     Indication: GENERAL ANAESTHESIA
  3. DONEPEZIL. [Suspect]
     Active Substance: DONEPEZIL
     Indication: DEMENTIA
  4. PROPOFOL. [Concomitant]
     Active Substance: PROPOFOL
     Indication: GENERAL ANAESTHESIA
     Dosage: 2% PROPOFOL

REACTIONS (2)
  - Neuromuscular blockade [Recovered/Resolved]
  - Drug interaction [Unknown]
